FAERS Safety Report 9807161 (Version 2)
Quarter: 2014Q1

REPORT INFORMATION
  Report Type: Spontaneous
  Country: US (occurrence: US)
  Receive Date: 20140110
  Receipt Date: 20140121
  Transmission Date: 20141002
  Serious: Yes (Other)
  Sender: FDA-Public Use
  Company Number: US-BIOGENIDEC-2014BI000056

PATIENT
  Age: 35 Year
  Sex: Female

DRUGS (2)
  1. AVONEX [Suspect]
     Indication: MULTIPLE SCLEROSIS
     Route: 030
     Dates: start: 20131007
  2. LAMICTAL [Concomitant]
     Indication: COMPLEX PARTIAL SEIZURES

REACTIONS (2)
  - Petit mal epilepsy [Recovered/Resolved]
  - Convulsion [Recovered/Resolved]
